FAERS Safety Report 23146149 (Version 1)
Quarter: 2023Q4

REPORT INFORMATION
  Report Type: Spontaneous
  Country: ES (occurrence: ES)
  Receive Date: 20231104
  Receipt Date: 20231104
  Transmission Date: 20240109
  Serious: Yes (Death)
  Sender: FDA-Public Use
  Company Number: ES-PFIZER INC-PV202300174670

PATIENT
  Age: 82 Year
  Sex: Female

DRUGS (2)
  1. LETROZOLE [Suspect]
     Active Substance: LETROZOLE
     Indication: Product used for unknown indication
     Dosage: UNK, CYCLIC
     Route: 065
     Dates: start: 201909
  2. PALBOCICLIB [Suspect]
     Active Substance: PALBOCICLIB
     Indication: Product used for unknown indication
     Dosage: UNK, CYCLIC (COMPLETED 18 CYCLES)
     Route: 065
     Dates: start: 201909, end: 202103

REACTIONS (2)
  - Neoplasm progression [Fatal]
  - Haemoptysis [Unknown]

NARRATIVE: CASE EVENT DATE: 20210301
